FAERS Safety Report 10920511 (Version 1)
Quarter: 2015Q1

REPORT INFORMATION
  Report Type: Spontaneous
  Country: US (occurrence: None)
  Receive Date: 20150312
  Receipt Date: 20150312
  Transmission Date: 20150721
  Serious: No
  Sender: FDA-Public Use
  Company Number: None

PATIENT
  Age: 46 Year
  Sex: Female

DRUGS (1)
  1. ENBREL [Suspect]
     Active Substance: ETANERCEPT
     Indication: PSORIATIC ARTHROPATHY
     Dosage: SINCE AGE 37 TO CURRENT?
     Route: 058

REACTIONS (6)
  - Drug dose omission [None]
  - Rash pruritic [None]
  - Rash [None]
  - Sinusitis [None]
  - Rash erythematous [None]
  - Malaise [None]

NARRATIVE: CASE EVENT DATE: 20150305
